FAERS Safety Report 4723537-4 (Version None)
Quarter: 2005Q3

REPORT INFORMATION
  Report Type: 
  Country: None (occurrence: None)
  Receive Date: 20050720
  Receipt Date: 20050720
  Transmission Date: 20060218
  Serious: Yes (Other)
  Sender: FDA-Public Use
  Company Number: None

PATIENT
  Age: 18 Month
  Sex: Female
  Weight: 9.0719 kg

DRUGS (1)
  1. SILVADENE [Suspect]
     Indication: THERMAL BURN
     Dosage: TWICE DAILY
     Dates: start: 20050429, end: 20050506

REACTIONS (2)
  - APPLICATION SITE REACTION [None]
  - HIRSUTISM [None]
